FAERS Safety Report 5009688-8 (Version None)
Quarter: 2006Q2

REPORT INFORMATION
  Report Type: 
  Country: None (occurrence: None)
  Receive Date: 20060522
  Receipt Date: 20060504
  Transmission Date: 20061013
  Serious: Yes (Hospitalization)
  Sender: FDA-Public Use
  Company Number: 225229

PATIENT
  Age: 73 Year
  Sex: Male

DRUGS (11)
  1. AVASTIN [Suspect]
     Indication: COLORECTAL CANCER METASTATIC
     Dosage: 650 MG, Q3W, INTRAVENOUS
     Route: 042
     Dates: start: 20060111
  2. CAPECITABINE (CAPECITABINE) [Suspect]
     Indication: COLORECTAL CANCER METASTATIC
     Dosage: 2000 MG, BID, ORAL
     Route: 048
     Dates: start: 20060111
  3. OXALIPLATIN (OXALIPLATIN) [Suspect]
     Indication: COLORECTAL CANCER METASTATIC
     Dosage: 260 MG, Q3W, INTRAVENOUS
     Route: 042
     Dates: start: 20060111
  4. ERBITUX [Suspect]
     Dosage: 250 MG/M2, Q3W, INTRAVENOUS
     Route: 042
     Dates: start: 20060111
  5. CELIPROLOL (CELIPROLOL HYDROCHLORIDE) [Concomitant]
  6. ENALAPRIL MALEATE [Concomitant]
  7. PANTOPRAZOLE SODIUM [Concomitant]
  8. NITRAZEPAM [Concomitant]
  9. ASCORBIC ACID [Concomitant]
  10. PYRIDOXINE HCL [Concomitant]
  11. FISH OIL (FISH OIL) [Concomitant]

REACTIONS (4)
  - FATIGUE [None]
  - HAEMOGLOBIN DECREASED [None]
  - PYREXIA [None]
  - WHITE BLOOD CELL COUNT DECREASED [None]
